FAERS Safety Report 15736124 (Version 1)
Quarter: 2018Q4

REPORT INFORMATION
  Report Type: Spontaneous
  Country: GB (occurrence: GB)
  Receive Date: 20181218
  Receipt Date: 20181218
  Transmission Date: 20190205
  Serious: Yes (Death, Other)
  Sender: FDA-Public Use
  Company Number: GB-TEVA-2018-GB-988257

PATIENT
  Sex: Male

DRUGS (3)
  1. CLOFARABINE. [Suspect]
     Active Substance: CLOFARABINE
     Route: 065
  2. ETOPOSIDE. [Suspect]
     Active Substance: ETOPOSIDE
     Route: 065
  3. CYCLOPHOSPHAMIDE. [Suspect]
     Active Substance: CYCLOPHOSPHAMIDE
     Route: 065

REACTIONS (4)
  - Pneumonia fungal [Fatal]
  - Diarrhoea [Unknown]
  - Hyperbilirubinaemia [Unknown]
  - Pyrexia [Unknown]
